FAERS Safety Report 14536169 (Version 1)
Quarter: 2018Q1

REPORT INFORMATION
  Report Type: Report from Study
  Country: GB (occurrence: GB)
  Receive Date: 20180215
  Receipt Date: 20180215
  Transmission Date: 20180509
  Serious: Yes (Other)
  Sender: FDA-Public Use
  Company Number: PHHY2014GB114144

PATIENT
  Age: 63 Year
  Sex: Female

DRUGS (1)
  1. GILENYA [Suspect]
     Active Substance: FINGOLIMOD HYDROCHLORIDE
     Indication: MULTIPLE SCLEROSIS
     Dosage: 0.5 MG, QD
     Route: 048
     Dates: start: 20140717

REACTIONS (14)
  - Muscle spasticity [Unknown]
  - Musculoskeletal stiffness [Unknown]
  - Cough [Recovered/Resolved]
  - Alanine aminotransferase increased [Unknown]
  - Osteoarthritis [Unknown]
  - Pyrexia [Recovered/Resolved]
  - Hip fracture [Unknown]
  - Sinus bradycardia [Recovered/Resolved]
  - Lower respiratory tract infection [Recovered/Resolved]
  - Fall [Unknown]
  - White blood cell count decreased [Unknown]
  - Mobility decreased [Unknown]
  - Gait disturbance [Unknown]
  - Coordination abnormal [Unknown]

NARRATIVE: CASE EVENT DATE: 20140717
